FAERS Safety Report 25504344 (Version 1)
Quarter: 2025Q3

REPORT INFORMATION
  Report Type: Spontaneous
  Country: US (occurrence: US)
  Receive Date: 20250702
  Receipt Date: 20250702
  Transmission Date: 20251021
  Serious: No
  Sender: TAKEDA
  Company Number: US-TAKEDA-2025TUS059365

PATIENT
  Age: 60 Year
  Sex: Female

DRUGS (2)
  1. AGRYLIN [Suspect]
     Active Substance: ANAGRELIDE HYDROCHLORIDE
     Indication: Product used for unknown indication
  2. ANAGRELIDE [Suspect]
     Active Substance: ANAGRELIDE
     Indication: Product used for unknown indication

REACTIONS (1)
  - Dyspnoea [Unknown]
